FAERS Safety Report 5892622-6 (Version None)
Quarter: 2008Q3

REPORT INFORMATION
  Report Type: 
  Country: None (occurrence: None)
  Receive Date: 20080919
  Receipt Date: 20080912
  Transmission Date: 20090109
  Serious: Yes (Other)
  Sender: FDA-Public Use
  Company Number: 033494

PATIENT
  Age: 68 Year
  Sex: Male
  Weight: 74.8 kg

DRUGS (3)
  1. METOCLOPRAMIDE [Suspect]
     Indication: GASTROOESOPHAGEAL REFLUX DISEASE
     Dosage: 1 TABLET, QD, ORAL; 4 TABLET, QD, ORAL
     Route: 048
     Dates: start: 20080708, end: 20080712
  2. METOCLOPRAMIDE [Suspect]
     Indication: GASTROOESOPHAGEAL REFLUX DISEASE
     Dosage: 1 TABLET, QD, ORAL; 4 TABLET, QD, ORAL
     Route: 048
     Dates: start: 20080713, end: 20080811
  3. NEXIUM [Concomitant]

REACTIONS (4)
  - ANXIETY [None]
  - DEPRESSION [None]
  - PANIC ATTACK [None]
  - SUICIDAL IDEATION [None]
